FAERS Safety Report 4384799-9 (Version None)
Quarter: 2004Q2

REPORT INFORMATION
  Report Type: 
  Country: None (occurrence: None)
  Receive Date: 20040623
  Receipt Date: 20040623
  Transmission Date: 20050107
  Serious: Yes (Other)
  Sender: FDA-Public Use
  Company Number: None

PATIENT
  Age: 51 Year
  Sex: Male

DRUGS (1)
  1. FLOMAX [Suspect]
     Indication: BENIGN PROSTATIC HYPERPLASIA
     Dosage: 1 CAP PO QD
     Route: 048
     Dates: start: 20030507, end: 20040615

REACTIONS (3)
  - DRUG EFFECT DECREASED [None]
  - POLLAKIURIA [None]
  - TESTIS DISCOMFORT [None]
